FAERS Safety Report 9165527 (Version 1)
Quarter: 2013Q1

REPORT INFORMATION
  Report Type: Spontaneous
  Country: SE (occurrence: SE)
  Receive Date: 20130315
  Receipt Date: 20130315
  Transmission Date: 20140127
  Serious: Yes (Other)
  Sender: FDA-Public Use
  Company Number: SE-NOVOPROD-372669

PATIENT
  Age: 60 Year
  Sex: Male

DRUGS (3)
  1. VICTOZA [Suspect]
     Indication: DIABETES MELLITUS
     Dosage: UNK
     Route: 058
  2. VENLAFAXIN [Suspect]
     Dosage: UNK
     Route: 065
  3. METFORMIN [Concomitant]

REACTIONS (1)
  - Bundle branch block left [Not Recovered/Not Resolved]
